FAERS Safety Report 18522694 (Version 1)
Quarter: 2020Q4

REPORT INFORMATION
  Report Type: Report from Study
  Country: IT (occurrence: IT)
  Receive Date: 20201119
  Receipt Date: 20201119
  Transmission Date: 20210114
  Serious: Yes (Death, Other)
  Sender: FDA-Public Use
  Company Number: IT-JAZZ-2020-IT-015048

PATIENT
  Age: 70 Year

DRUGS (1)
  1. DEFITELIO [Suspect]
     Active Substance: DEFIBROTIDE SODIUM
     Indication: VENOOCCLUSIVE LIVER DISEASE
     Dosage: UNKNOWN DOSE
     Dates: start: 20200901, end: 20200906

REACTIONS (1)
  - Death [Fatal]

NARRATIVE: CASE EVENT DATE: 202009
